FAERS Safety Report 10975278 (Version 1)
Quarter: 2015Q2

REPORT INFORMATION
  Report Type: Spontaneous
  Country: JP (occurrence: JP)
  Receive Date: 20150401
  Receipt Date: 20150401
  Transmission Date: 20150821
  Serious: Yes (Hospitalization)
  Sender: FDA-Public Use
  Company Number: JP-SA-2015SA038116

PATIENT
  Age: 66 Year
  Sex: Female

DRUGS (16)
  1. ALFACALCIDOL [Suspect]
     Active Substance: ALFACALCIDOL
     Route: 048
     Dates: end: 2005
  2. VILDAGLIPTIN [Suspect]
     Active Substance: VILDAGLIPTIN
     Route: 048
  3. ALFACALCIDOL [Suspect]
     Active Substance: ALFACALCIDOL
     Route: 048
     Dates: start: 200901, end: 2013
  4. RENAGEL [Suspect]
     Active Substance: SEVELAMER HYDROCHLORIDE
     Route: 048
     Dates: start: 2009
  5. ALFACALCIDOL [Suspect]
     Active Substance: ALFACALCIDOL
     Route: 048
     Dates: start: 2013
  6. CALCIUM CARBONATE. [Suspect]
     Active Substance: CALCIUM CARBONATE
     Route: 048
     Dates: start: 2003, end: 2007
  7. CALCIUM CARBONATE. [Suspect]
     Active Substance: CALCIUM CARBONATE
     Route: 048
     Dates: start: 2009
  8. REGPARA [Suspect]
     Active Substance: CINACALCET HYDROCHLORIDE
     Indication: BLOOD PARATHYROID HORMONE INCREASED
     Route: 048
     Dates: start: 200901
  9. RENAGEL [Suspect]
     Active Substance: SEVELAMER HYDROCHLORIDE
     Route: 048
     Dates: start: 2008, end: 2009
  10. NIFEDIPINE. [Suspect]
     Active Substance: NIFEDIPINE
     Route: 048
  11. ALFACALCIDOL [Suspect]
     Active Substance: ALFACALCIDOL
     Route: 048
     Dates: start: 2005, end: 200901
  12. CALCIUM CARBONATE. [Suspect]
     Active Substance: CALCIUM CARBONATE
     Route: 048
     Dates: end: 2003
  13. CALCIUM CARBONATE. [Suspect]
     Active Substance: CALCIUM CARBONATE
     Route: 048
     Dates: start: 2008, end: 2008
  14. CALCIUM CARBONATE. [Suspect]
     Active Substance: CALCIUM CARBONATE
     Route: 048
     Dates: start: 2008, end: 2009
  15. CALCIUM CARBONATE. [Suspect]
     Active Substance: CALCIUM CARBONATE
     Route: 048
     Dates: start: 2007, end: 2008
  16. TELMISARTAN. [Suspect]
     Active Substance: TELMISARTAN
     Route: 048

REACTIONS (1)
  - Intracardiac mass [Recovered/Resolved]
